FAERS Safety Report 24983239 (Version 1)
Quarter: 2025Q1

REPORT INFORMATION
  Report Type: Spontaneous
  Country: US (occurrence: US)
  Receive Date: 20250218
  Receipt Date: 20250218
  Transmission Date: 20250408
  Serious: No
  Sender: ELI LILLY AND COMPANY
  Company Number: US-ELI_LILLY_AND_COMPANY-US202501021155

PATIENT
  Age: 70 Year
  Sex: Female

DRUGS (10)
  1. EMGALITY [Suspect]
     Active Substance: GALCANEZUMAB-GNLM
     Indication: Migraine
     Route: 058
     Dates: start: 2020
  2. EMGALITY [Suspect]
     Active Substance: GALCANEZUMAB-GNLM
     Indication: Migraine
     Route: 058
     Dates: start: 2020
  3. EMGALITY [Suspect]
     Active Substance: GALCANEZUMAB-GNLM
     Indication: Migraine
     Route: 058
     Dates: start: 2020
  4. EMGALITY [Suspect]
     Active Substance: GALCANEZUMAB-GNLM
     Route: 058
     Dates: start: 202412
  5. EMGALITY [Suspect]
     Active Substance: GALCANEZUMAB-GNLM
     Route: 058
     Dates: start: 202412
  6. EMGALITY [Suspect]
     Active Substance: GALCANEZUMAB-GNLM
     Route: 058
     Dates: start: 202412
  7. EMGALITY [Suspect]
     Active Substance: GALCANEZUMAB-GNLM
     Route: 058
  8. EMGALITY [Suspect]
     Active Substance: GALCANEZUMAB-GNLM
     Route: 058
  9. EMGALITY [Suspect]
     Active Substance: GALCANEZUMAB-GNLM
     Route: 058
  10. IMITREX [Concomitant]
     Active Substance: SUMATRIPTAN SUCCINATE
     Indication: Headache
     Route: 065

REACTIONS (3)
  - Drug dose omission by device [Unknown]
  - Injection site pain [Recovered/Resolved]
  - Injection site mass [Recovered/Resolved]
